FAERS Safety Report 4323194-5 (Version None)
Quarter: 2004Q1

REPORT INFORMATION
  Report Type: 
  Country: None (occurrence: None)
  Receive Date: 20040322
  Receipt Date: 20040309
  Transmission Date: 20041129
  Serious: No
  Sender: FDA-Public Use
  Company Number: 04P-163-0252732-00

PATIENT
  Age: 33 Year
  Sex: Female

DRUGS (4)
  1. NORVIR [Suspect]
     Indication: HIV INFECTION
     Dosage: 100 MG, 1 IN 1 D, PER ORAL
     Route: 048
     Dates: start: 20031218
  2. TENOFOVIR [Concomitant]
  3. ATAZANAVIR [Concomitant]
  4. LAMIVUDINE [Concomitant]

REACTIONS (3)
  - COMPLICATIONS OF MATERNAL EXPOSURE TO THERAPEUTIC DRUGS [None]
  - ULTRASOUND SCAN ABNORMAL [None]
  - UTERINE DILATION AND CURETTAGE [None]
